FAERS Safety Report 7477909-8 (Version None)
Quarter: 2011Q2

REPORT INFORMATION
  Report Type: 
  Country: None (occurrence: None)
  Receive Date: 20110513
  Receipt Date: 20081001
  Transmission Date: 20111010
  Serious: Yes (Other)
  Sender: FDA-Public Use
  Company Number: US-BAYER-2011-009843

PATIENT
  Age: 69 Year
  Sex: Male
  Weight: 75 kg

DRUGS (9)
  1. PROTAMINE SULFATE [Concomitant]
     Dosage: 300 MG X2
     Route: 042
  2. PLETAL [Concomitant]
     Dosage: 100 MG TWICE DAILY
  3. AMARYL [Concomitant]
  4. PLAVIX [Concomitant]
     Dosage: 75 MG DAILY
     Route: 048
  5. TRASYLOL [Suspect]
     Indication: CORONARY ARTERY BYPASS
     Dosage: UNK
     Dates: start: 20010612, end: 20010612
  6. CARDURA [Concomitant]
     Dosage: 4 MG DAILY
     Route: 048
  7. LOTENSIN [Concomitant]
     Dosage: 20/12.5 MG DAILY
     Route: 048
  8. INSULIN [INSULIN] [Concomitant]
     Dosage: UNK
     Route: 042
     Dates: start: 20010612
  9. HEPARIN [Concomitant]
     Dosage: UNK
     Route: 042
     Dates: start: 20010612

REACTIONS (6)
  - STRESS [None]
  - INJURY [None]
  - CEREBROVASCULAR ACCIDENT [None]
  - ANXIETY [None]
  - EMOTIONAL DISTRESS [None]
  - PAIN [None]
